FAERS Safety Report 18140697 (Version 1)
Quarter: 2020Q3

REPORT INFORMATION
  Report Type: Spontaneous
  Country: US (occurrence: US)
  Receive Date: 20200812
  Receipt Date: 20200812
  Transmission Date: 20201103
  Serious: No
  Sender: FDA-Public Use
  Company Number: US-BAYER-2020-167211

PATIENT
  Sex: Male

DRUGS (2)
  1. PURELAX [Concomitant]
     Active Substance: POLYETHYLENE GLYCOL 3350
  2. MIRALAX [Suspect]
     Active Substance: POLYETHYLENE GLYCOL 3350
     Indication: GASTROINTESTINAL DISORDER
     Route: 065

REACTIONS (1)
  - Extra dose administered [Unknown]
